FAERS Safety Report 9176857 (Version 1)
Quarter: 2013Q1

REPORT INFORMATION
  Report Type: Spontaneous
  Country: DE (occurrence: DE)
  Receive Date: 20130321
  Receipt Date: 20130321
  Transmission Date: 20140127
  Serious: Yes (Other)
  Sender: FDA-Public Use
  Company Number: DE-AMGEN-DEUSP2013019715

PATIENT
  Age: 73 Year
  Sex: Female

DRUGS (3)
  1. ENBREL [Suspect]
     Indication: RHEUMATOID ARTHRITIS
     Dosage: 50 MG, WEEKLY
     Dates: start: 20120823, end: 20130214
  2. MTX                                /00113802/ [Concomitant]
     Dosage: UNK UNK, UNK
  3. EREMFAT                            /00146902/ [Concomitant]
     Dosage: UNK UNK, UNK

REACTIONS (1)
  - Foot deformity [Unknown]
